FAERS Safety Report 9638637 (Version 1)
Quarter: 2013Q4

REPORT INFORMATION
  Report Type: Spontaneous
  Country: US (occurrence: US)
  Receive Date: 20131022
  Receipt Date: 20131022
  Transmission Date: 20140711
  Serious: No
  Sender: FDA-Public Use
  Company Number: US-BRISTOL-MYERS SQUIBB COMPANY-19412667

PATIENT
  Age: 86 Year
  Sex: Female
  Weight: 71.65 kg

DRUGS (9)
  1. ELIQUIS [Suspect]
     Indication: ATRIAL FIBRILLATION
     Dates: start: 20130904
  2. OCUVITE [Concomitant]
  3. CHONDROITIN SULFATE + GLUCOSAMINE [Concomitant]
  4. RESVERATROL [Concomitant]
  5. CO-Q-10 PLUS [Concomitant]
  6. POTASSIUM [Concomitant]
  7. VITAMIN B COMPLEX [Concomitant]
  8. DIGOXIN [Concomitant]
  9. METOPROLOL [Concomitant]

REACTIONS (3)
  - Balance disorder [Unknown]
  - Headache [Unknown]
  - Gingival bleeding [Unknown]
